FAERS Safety Report 6885669-4 (Version None)
Quarter: 2010Q3

REPORT INFORMATION
  Report Type: 
  Country: None (occurrence: None)
  Receive Date: 20100729
  Receipt Date: 20080403
  Transmission Date: 20110219
  Serious: Yes (Other)
  Sender: FDA-Public Use
  Company Number: US-PFIZER INC-2008029923

PATIENT
  Sex: Female
  Weight: 65.909 kg

DRUGS (5)
  1. CELEBREX [Suspect]
     Indication: ARTHRITIS
     Route: 048
     Dates: start: 20080301, end: 20080301
  2. ASPIRIN [Concomitant]
  3. FISH OIL [Concomitant]
  4. CRESTOR [Concomitant]
  5. ESTRADIOL [Concomitant]

REACTIONS (2)
  - HAEMATOCHEZIA [None]
  - PAIN [None]
